FAERS Safety Report 9424516 (Version 1)
Quarter: 2013Q3

REPORT INFORMATION
  Report Type: Spontaneous
  Country: US (occurrence: None)
  Receive Date: 20130725
  Receipt Date: 20130725
  Transmission Date: 20140515
  Serious: Yes (Hospitalization)
  Sender: FDA-Public Use
  Company Number: 2013-316

PATIENT
  Age: 59 Year
  Sex: Female

DRUGS (1)
  1. CLOZAPINE [Suspect]
     Indication: SCHIZOPHRENIA, PARANOID TYPE
     Route: 048
     Dates: start: 2009

REACTIONS (7)
  - Toxicity to various agents [None]
  - Tachyphrenia [None]
  - Depression [None]
  - Hallucination, auditory [None]
  - Hallucination, visual [None]
  - Dysarthria [None]
  - Paranoia [None]
